FAERS Safety Report 19416547 (Version 1)
Quarter: 2021Q2

REPORT INFORMATION
  Report Type: Spontaneous
  Country: US (occurrence: US)
  Receive Date: 20210615
  Receipt Date: 20210615
  Transmission Date: 20210717
  Serious: Yes (Other)
  Sender: FDA-Public Use
  Company Number: US-MACLEODS PHARMACEUTICALS US LTD-MAC2021031495

PATIENT

DRUGS (6)
  1. ACYCLOVIR. [Suspect]
     Active Substance: ACYCLOVIR
     Indication: HERPES ZOSTER
     Dosage: UNK
     Route: 042
  2. ACYCLOVIR. [Suspect]
     Active Substance: ACYCLOVIR
     Dosage: 200 MILLIGRAM, QD
     Route: 048
  3. CHLORAMBUCIL [Concomitant]
     Active Substance: CHLORAMBUCIL
     Indication: LYMPHADENOPATHY
     Dosage: UNK, START DATE: IN 1979
     Route: 065
  4. ACYCLOVIR. [Suspect]
     Active Substance: ACYCLOVIR
     Dosage: 200 MILLIGRAM, TID (600MG), START DATE: 16?MAY?1984
     Route: 048
  5. ACYCLOVIR. [Suspect]
     Active Substance: ACYCLOVIR
     Dosage: 400 MILLIGRAM, QD
     Route: 048
  6. ACYCLOVIR. [Suspect]
     Active Substance: ACYCLOVIR
     Dosage: 200 MILLIGRAM, QOD
     Route: 048

REACTIONS (6)
  - Neurotoxicity [Recovered/Resolved]
  - Depression [Recovered/Resolved]
  - Disorientation [Recovered/Resolved]
  - Fatigue [Recovered/Resolved]
  - Lethargy [Recovered/Resolved]
  - Irritability [Recovered/Resolved]
